FAERS Safety Report 9291030 (Version 1)
Quarter: 2013Q2

REPORT INFORMATION
  Report Type: Spontaneous
  Country: US (occurrence: US)
  Receive Date: 20130515
  Receipt Date: 20130515
  Transmission Date: 20140414
  Serious: Yes (Hospitalization, Other)
  Sender: FDA-Public Use
  Company Number: US-009507513-0711USA00688

PATIENT
  Sex: Female
  Weight: 67.59 kg

DRUGS (20)
  1. FOSAMAX [Suspect]
     Indication: OSTEOPOROSIS
     Dosage: 10 MG, QD
     Route: 048
     Dates: start: 200004, end: 200602
  2. FOSAMAX [Suspect]
     Dosage: 70 MG, QW
     Route: 048
     Dates: start: 20010910
  3. PREMPRO [Concomitant]
     Dosage: 0.625/2.5
     Dates: start: 1999, end: 2005
  4. THERAPY UNSPECIFIED [Concomitant]
     Indication: BLOOD CHOLESTEROL INCREASED
     Dates: start: 1982
  5. SKELAXIN [Concomitant]
     Indication: ARTHRITIS
     Dates: start: 20000423
  6. XANAX [Concomitant]
     Indication: DEPRESSION
     Dosage: 0.5 MG, QPM
     Dates: start: 1992
  7. XANAX [Concomitant]
     Indication: PANIC ATTACK
     Dosage: 0.25 MG, UNK
     Dates: start: 20000423
  8. ZOLOFT [Concomitant]
     Dosage: 50 MG, BID
  9. ZANTAC [Concomitant]
     Dosage: 150 MG, BID
  10. DICYCLOMINE HYDROCHLORIDE [Concomitant]
     Indication: GASTRIC DISORDER
     Dosage: 10 MG, QID
  11. DICYCLOMINE HYDROCHLORIDE [Concomitant]
     Indication: IRRITABLE BOWEL SYNDROME
  12. LORCET [Concomitant]
  13. CATAFLAM [Concomitant]
     Indication: OSTEOARTHRITIS
     Dosage: 50 MG, TID
  14. ULTRAM [Concomitant]
  15. ROBAXIN [Concomitant]
  16. METHYLPREDNISOLONE [Concomitant]
     Dates: start: 20000520, end: 20000602
  17. TENORMIN [Concomitant]
     Indication: HYPERTENSION
     Dosage: 50 MG, HS
     Dates: start: 1978
  18. LEVOXYL [Concomitant]
     Indication: THYROID DISORDER
     Dosage: 0.1 MG, QD
  19. MK-9384 [Concomitant]
     Dates: start: 2000
  20. HYDROCODONE BITARTRATE [Concomitant]
     Dates: start: 199910

REACTIONS (39)
  - Spinal fusion surgery [Unknown]
  - Intervertebral disc degeneration [Unknown]
  - Abdominal hernia [Unknown]
  - Osteonecrosis of jaw [Recovered/Resolved]
  - Intervertebral disc space narrowing [Unknown]
  - Intervertebral disc protrusion [Unknown]
  - Appendicectomy [Unknown]
  - Hernia repair [Unknown]
  - Temporomandibular joint syndrome [Unknown]
  - Tooth abscess [Unknown]
  - Restless legs syndrome [Unknown]
  - Vascular headache [Unknown]
  - Rhinorrhoea [Unknown]
  - Fibromyalgia [Unknown]
  - Adverse drug reaction [Unknown]
  - Hypokalaemia [Unknown]
  - Abnormal dreams [Unknown]
  - Eyelid disorder [Unknown]
  - Dry eye [Unknown]
  - Synovial cyst [Unknown]
  - Contusion [Unknown]
  - Dysuria [Unknown]
  - Hyperhidrosis [Unknown]
  - Migraine [Unknown]
  - Weight decreased [Unknown]
  - Fungal infection [Unknown]
  - Adverse drug reaction [Unknown]
  - Depression [Unknown]
  - Mitral valve disease [Unknown]
  - Rheumatoid arthritis [Unknown]
  - Insomnia [Unknown]
  - Hypertriglyceridaemia [Unknown]
  - Rosacea [Unknown]
  - Dry mouth [Unknown]
  - Paraesthesia [Unknown]
  - Angioedema [Unknown]
  - Pharyngeal oedema [Unknown]
  - Neck pain [Not Recovered/Not Resolved]
  - Musculoskeletal pain [Unknown]
